FAERS Safety Report 16646592 (Version 1)
Quarter: 2019Q3

REPORT INFORMATION
  Report Type: Spontaneous
  Country: US (occurrence: US)
  Receive Date: 20190730
  Receipt Date: 20190730
  Transmission Date: 20191004
  Serious: No
  Sender: FDA-Public Use
  Company Number: US-BAUSCH-BL-2019-020191

PATIENT
  Sex: Female

DRUGS (2)
  1. ELIDEL [Suspect]
     Active Substance: PIMECROLIMUS
     Indication: ECZEMA
     Dosage: ONCE A DAY TO TWICE A DAY MAINLY TO HER EYEBROWS
     Route: 061
     Dates: start: 2019, end: 2019
  2. ELIDEL [Suspect]
     Active Substance: PIMECROLIMUS
     Dosage: APPLIED THE MEDICATION AT NIGHT
     Route: 061
     Dates: start: 2019, end: 201907

REACTIONS (2)
  - Somnolence [Recovered/Resolved]
  - Dizziness [Recovered/Resolved]

NARRATIVE: CASE EVENT DATE: 2019
